FAERS Safety Report 4416682-4 (Version None)
Quarter: 2004Q3

REPORT INFORMATION
  Report Type: 
  Country: None (occurrence: None)
  Receive Date: 20040802
  Receipt Date: 20040722
  Transmission Date: 20050211
  Serious: No
  Sender: FDA-Public Use
  Company Number: 2004UW15549

PATIENT
  Age: 68 Year
  Sex: Female
  Weight: 68.0396 kg

DRUGS (6)
  1. SEROQUEL [Suspect]
     Indication: STRESS SYMPTOMS
  2. ATENOLOL [Concomitant]
  3. NORVASC [Concomitant]
  4. CAPTOPRIL [Concomitant]
  5. DIGITEK [Concomitant]
  6. GEMFIBROZIL [Concomitant]

REACTIONS (2)
  - BLOOD TRIGLYCERIDES INCREASED [None]
  - VISUAL DISTURBANCE [None]
